FAERS Safety Report 5482643-X (Version None)
Quarter: 2007Q4

REPORT INFORMATION
  Report Type: 
  Country: None (occurrence: None)
  Receive Date: 20071011
  Receipt Date: 20070910
  Transmission Date: 20080405
  Serious: No
  Sender: FDA-Public Use
  Company Number: A0680147A

PATIENT
  Age: 65 Year
  Sex: Female

DRUGS (2)
  1. TYKERB [Suspect]
     Indication: BREAST CANCER
     Dosage: 5TAB PER DAY
     Route: 048
     Dates: start: 20070824
  2. CHEMOTHERAPY [Concomitant]
     Route: 042

REACTIONS (4)
  - DIARRHOEA [None]
  - GASTROINTESTINAL DISORDER [None]
  - JOINT SWELLING [None]
  - OEDEMA PERIPHERAL [None]
